FAERS Safety Report 13354829 (Version 4)
Quarter: 2018Q1

REPORT INFORMATION
  Report Type: Report from Study
  Country: JP (occurrence: JP)
  Receive Date: 20170321
  Receipt Date: 20180109
  Transmission Date: 20180508
  Serious: Yes (Hospitalization)
  Sender: FDA-Public Use
  Company Number: JP-OTSUKA-2017_003337

PATIENT
  Age: 46 Year
  Sex: Male
  Weight: 65.8 kg

DRUGS (36)
  1. ABILIFY [Concomitant]
     Active Substance: ARIPIPRAZOLE
     Dosage: 6 MG, QD
     Route: 048
     Dates: start: 20160829, end: 20160907
  2. GOODMIN [Concomitant]
     Active Substance: BROTIZOLAM
     Indication: PRODUCT USED FOR UNKNOWN INDICATION
     Dosage: 0.25 MG, QD
     Route: 048
     Dates: end: 20170712
  3. FLUNITRAZEPAM [Concomitant]
     Active Substance: FLUNITRAZEPAM
     Indication: PRODUCT USED FOR UNKNOWN INDICATION
     Dosage: 2 MG, QD
     Route: 048
  4. BIO-THREE [Concomitant]
     Active Substance: HERBALS
     Indication: PRODUCT USED FOR UNKNOWN INDICATION
     Dosage: 3 DF, QD
     Route: 048
     Dates: end: 20170802
  5. ARIPIPRAZOLE (DUAL CHAMBER) [Suspect]
     Active Substance: ARIPIPRAZOLE
     Dosage: 400 MG, SINGLE, BUTTOCKS
     Route: 030
     Dates: start: 20170302, end: 20170302
  6. LITHIUM CARBONATE. [Suspect]
     Active Substance: LITHIUM CARBONATE
     Indication: PRODUCT USED FOR UNKNOWN INDICATION
     Dosage: 800 MG, QD
     Route: 048
     Dates: end: 20170712
  7. ABILIFY [Concomitant]
     Active Substance: ARIPIPRAZOLE
     Indication: SCHIZOPHRENIA
     Dosage: 18 MG, QD
     Route: 048
     Dates: start: 20160804, end: 20160808
  8. SODIUM VALPROATE [Concomitant]
     Active Substance: VALPROATE SODIUM
     Indication: PRODUCT USED FOR UNKNOWN INDICATION
     Dosage: 600 MG, QD
     Route: 048
     Dates: end: 20160928
  9. ARIPIPRAZOLE (DUAL CHAMBER) [Suspect]
     Active Substance: ARIPIPRAZOLE
     Dosage: 400 MG, SINGLE, BUTTOCKS
     Route: 030
     Dates: start: 20160907, end: 20160907
  10. ARIPIPRAZOLE (DUAL CHAMBER) [Suspect]
     Active Substance: ARIPIPRAZOLE
     Dosage: 400 MG, SINGLE, BUTTOCKS
     Route: 030
     Dates: start: 20170803
  11. QUETIAPINE FUMARATE. [Concomitant]
     Active Substance: QUETIAPINE FUMARATE
     Indication: PRODUCT USED FOR UNKNOWN INDICATION
     Dosage: 25 (UNIT UNKNOWN) WHEN WITH POOR CONDITION
     Route: 048
     Dates: end: 20170512
  12. SODIUM VALPROATE [Concomitant]
     Active Substance: VALPROATE SODIUM
     Dosage: 800 MG, QD
     Route: 048
     Dates: start: 20160929
  13. ARIPIPRAZOLE (DUAL CHAMBER) [Suspect]
     Active Substance: ARIPIPRAZOLE
     Dosage: 400 MG, SINGLE, BUTTOCKS
     Route: 030
     Dates: start: 20161222, end: 20161222
  14. LODOPINE [Concomitant]
     Active Substance: ZOTEPINE
     Indication: SCHIZOPHRENIA
     Dosage: 100 MG, QD
     Route: 048
     Dates: end: 20160907
  15. LODOPINE [Concomitant]
     Active Substance: ZOTEPINE
     Dosage: 150 MG, QD
     Route: 048
     Dates: start: 20160915, end: 20160930
  16. ARIPIPRAZOLE (DUAL CHAMBER) [Suspect]
     Active Substance: ARIPIPRAZOLE
     Dosage: 400 MG, SINGLE, BUTTOCKS
     Route: 030
     Dates: start: 20160810, end: 20160810
  17. ARIPIPRAZOLE (DUAL CHAMBER) [Suspect]
     Active Substance: ARIPIPRAZOLE
     Dosage: 400 MG, SINGLE, BUTTOCKS
     Route: 030
     Dates: start: 20161005, end: 20161005
  18. ARIPIPRAZOLE (DUAL CHAMBER) [Suspect]
     Active Substance: ARIPIPRAZOLE
     Dosage: 400 MG, SINGLE, BUTTOCKS
     Route: 030
     Dates: start: 20170323, end: 20170323
  19. ARIPIPRAZOLE (DUAL CHAMBER) [Suspect]
     Active Substance: ARIPIPRAZOLE
     Dosage: 400 MG, SINGLE, BUTTOCKS
     Route: 030
     Dates: start: 20170601, end: 20170601
  20. ARIPIPRAZOLE (DUAL CHAMBER) [Suspect]
     Active Substance: ARIPIPRAZOLE
     Dosage: 400 MG, SINGLE, BUTTOCKS
     Route: 030
     Dates: start: 20170622, end: 20170622
  21. ABILIFY [Concomitant]
     Active Substance: ARIPIPRAZOLE
     Dosage: 6 MG, QD
     Route: 048
     Dates: start: 20160915, end: 20161102
  22. LODOPINE [Concomitant]
     Active Substance: ZOTEPINE
     Dosage: 175 MG, QD
     Route: 048
     Dates: start: 20161001, end: 20170216
  23. ARIPIPRAZOLE (DUAL CHAMBER) [Suspect]
     Active Substance: ARIPIPRAZOLE
     Dosage: 400 MG, SINGLE, BUTTOCKS
     Route: 030
     Dates: start: 20170713, end: 20170713
  24. ABILIFY [Concomitant]
     Active Substance: ARIPIPRAZOLE
     Dosage: 12 MG, QD
     Route: 048
     Dates: start: 20160809, end: 20160828
  25. ABILIFY [Concomitant]
     Active Substance: ARIPIPRAZOLE
     Dosage: 3 MG, QD
     Route: 048
     Dates: start: 20160908, end: 20160914
  26. SODIUM PICOSULFATE [Concomitant]
     Active Substance: SODIUM PICOSULFATE
     Indication: PRODUCT USED FOR UNKNOWN INDICATION
     Dosage: Q.L.
     Route: 048
     Dates: start: 20160806, end: 20170713
  27. ARIPIPRAZOLE (DUAL CHAMBER) [Suspect]
     Active Substance: ARIPIPRAZOLE
     Dosage: 400 MG, SINGLE, BUTTOCKS
     Route: 030
     Dates: start: 20170119, end: 20170119
  28. LODOPINE [Concomitant]
     Active Substance: ZOTEPINE
     Dosage: 125 MG, QD
     Route: 048
     Dates: start: 20170713
  29. ARIPIPRAZOLE (DUAL CHAMBER) [Suspect]
     Active Substance: ARIPIPRAZOLE
     Indication: SCHIZOPHRENIA
     Dosage: 400 MG, SINGLE, BUTTOCKS
     Route: 030
     Dates: start: 20161201, end: 20161201
  30. ARIPIPRAZOLE (DUAL CHAMBER) [Suspect]
     Active Substance: ARIPIPRAZOLE
     Dosage: 400 MG, SINGLE, BUTTOCKS
     Route: 030
     Dates: start: 20161101, end: 20161101
  31. ARIPIPRAZOLE (DUAL CHAMBER) [Suspect]
     Active Substance: ARIPIPRAZOLE
     Dosage: 400 MG, SINGLE, BUTTOCKS
     Route: 030
     Dates: start: 20170209, end: 20170209
  32. ARIPIPRAZOLE (DUAL CHAMBER) [Suspect]
     Active Substance: ARIPIPRAZOLE
     Dosage: 400 MG, SINGLE, BUTTOCKS
     Route: 030
     Dates: start: 20170420, end: 20170420
  33. ARIPIPRAZOLE (DUAL CHAMBER) [Suspect]
     Active Substance: ARIPIPRAZOLE
     Dosage: 400 MG, SINGLE, BUTTOCKS
     Route: 030
     Dates: start: 20170511, end: 20170511
  34. LITHIUM CARBONATE. [Suspect]
     Active Substance: LITHIUM CARBONATE
     Dosage: 300 MG, QD
     Route: 048
     Dates: start: 20170713
  35. LODOPINE [Concomitant]
     Active Substance: ZOTEPINE
     Dosage: 150 MG, QD
     Route: 048
     Dates: start: 20170217, end: 20170712
  36. PRANLUKAST [Concomitant]
     Active Substance: PRANLUKAST
     Indication: PRODUCT USED FOR UNKNOWN INDICATION
     Dosage: 225 MG, QD
     Route: 048
     Dates: end: 20170216

REACTIONS (5)
  - Erythema [Recovered/Resolved]
  - Tremor [Recovering/Resolving]
  - Psychomotor hyperactivity [Recovered/Resolved]
  - Psychomotor hyperactivity [Recovered/Resolved]
  - Inappropriate schedule of drug administration [Unknown]

NARRATIVE: CASE EVENT DATE: 20161214
